FAERS Safety Report 5888853-1 (Version None)
Quarter: 2008Q3

REPORT INFORMATION
  Report Type: 
  Country: None (occurrence: None)
  Receive Date: 20080919
  Receipt Date: 20080908
  Transmission Date: 20090109
  Serious: Yes (Other)
  Sender: FDA-Public Use
  Company Number: PHHY2008DE21083

PATIENT
  Sex: Female

DRUGS (3)
  1. DIOVAN [Suspect]
     Indication: HYPERTENSION
     Dosage: 80 MG, BID
     Dates: start: 20061001
  2. CARBAMAZEPIN ^NEURAXPHARM^ [Concomitant]
     Indication: PARAESTHESIA
     Dosage: UNK
     Dates: start: 20061201
  3. CYNT ^BEIERSDORF^ [Concomitant]
     Indication: HYPERTENSION

REACTIONS (1)
  - BLOOD TRIGLYCERIDES INCREASED [None]
